FAERS Safety Report 22324583 (Version 1)
Quarter: 2023Q2

REPORT INFORMATION
  Report Type: Spontaneous
  Country: US (occurrence: US)
  Receive Date: 20230516
  Receipt Date: 20230516
  Transmission Date: 20230721
  Serious: Yes (Other)
  Sender: FDA-Public Use
  Company Number: US-SUN PHARMACEUTICAL INDUSTRIES LTD-2023R1-377674

PATIENT
  Sex: Female

DRUGS (1)
  1. WINLEVI [Suspect]
     Active Substance: CLASCOTERONE
     Indication: Acne
     Dosage: UNK, BID
     Route: 065
     Dates: start: 20230112

REACTIONS (4)
  - Product contamination microbial [Unknown]
  - Poor quality product administered [Unknown]
  - Product storage error [Unknown]
  - Condition aggravated [Unknown]
